FAERS Safety Report 9573009 (Version 1)
Quarter: 2013Q4

REPORT INFORMATION
  Report Type: Spontaneous
  Country: GB (occurrence: GB)
  Receive Date: 20131001
  Receipt Date: 20131001
  Transmission Date: 20140711
  Serious: Yes (Hospitalization)
  Sender: FDA-Public Use
  Company Number: GB-PFIZER INC-2013275000

PATIENT
  Age: 71 Year
  Sex: Male

DRUGS (6)
  1. IBUPROFEN [Suspect]
     Indication: PAIN
     Dosage: 600 MG, 3X/DAY
     Route: 048
     Dates: start: 20130906, end: 20130913
  2. CO-CODAMOL [Concomitant]
     Dosage: 30MG/500MG TABLETS. 1 OR 2 FOUR TIMES DAILY.
  3. INFLUENZA VACCINE (SPLIT VIRION, INACTIVATED) [Concomitant]
  4. QUININE SULPHATE [Concomitant]
     Dosage: 300 MG, 1X/DAY
  5. HYDROXYCARBAMIDE [Concomitant]
     Dosage: 500MG CAPSULES, 2 DAILY
  6. RANITIDINE [Concomitant]
     Dosage: 300 MG, 1X/DAY

REACTIONS (6)
  - Gastrointestinal haemorrhage [Recovering/Resolving]
  - Diarrhoea [Unknown]
  - Faeces discoloured [Unknown]
  - Dizziness [Unknown]
  - Abdominal pain [Unknown]
  - Frequent bowel movements [Unknown]
